FAERS Safety Report 10085921 (Version 2)
Quarter: 2014Q2

REPORT INFORMATION
  Report Type: Spontaneous
  Country: NO (occurrence: NO)
  Receive Date: 20140418
  Receipt Date: 20140522
  Transmission Date: 20141212
  Serious: Yes (Hospitalization)
  Sender: FDA-Public Use
  Company Number: NO-ROCHE-1379257

PATIENT
  Age: 80 Year
  Sex: Female

DRUGS (4)
  1. ROACTEMRA [Suspect]
     Indication: RHEUMATOID ARTHRITIS
     Dosage: 4 INFUSIONS
     Route: 051
     Dates: start: 201311, end: 20140211
  2. FENEMAL [Interacting]
     Indication: EPILEPSY
     Route: 048
     Dates: start: 1960
  3. PARACETAMOL [Concomitant]
     Route: 065
  4. OXYCODONE [Concomitant]
     Route: 065

REACTIONS (2)
  - Confusional state [Unknown]
  - Generalised tonic-clonic seizure [Recovered/Resolved]
